FAERS Safety Report 17358719 (Version 1)
Quarter: 2020Q1

REPORT INFORMATION
  Report Type: Spontaneous
  Country: DE (occurrence: DE)
  Receive Date: 20200201
  Receipt Date: 20200201
  Transmission Date: 20200409
  Serious: Yes (Hospitalization, Other)
  Sender: FDA-Public Use
  Company Number: NVSC2020DE020910

PATIENT
  Age: 76 Year
  Sex: Male
  Weight: 97 kg

DRUGS (2)
  1. DEXAMETHASONE SODIUM PHOSPHATE. [Suspect]
     Active Substance: DEXAMETHASONE SODIUM PHOSPHATE
     Indication: ABDOMINAL PAIN UPPER
  2. DEXAMETHASONE SODIUM PHOSPHATE. [Suspect]
     Active Substance: DEXAMETHASONE SODIUM PHOSPHATE
     Indication: APPENDIX DISORDER
     Dosage: 1 DF (1 SPRITZE)
     Route: 042
     Dates: start: 20191017, end: 20191017

REACTIONS (5)
  - Syncope [Unknown]
  - Anxiety [Unknown]
  - Coma [Unknown]
  - Respiratory distress [Unknown]
  - Hyperhidrosis [Unknown]

NARRATIVE: CASE EVENT DATE: 20191017
